FAERS Safety Report 10842258 (Version 1)
Quarter: 2015Q1

REPORT INFORMATION
  Report Type: Spontaneous
  Country: DE (occurrence: DE)
  Receive Date: 20150220
  Receipt Date: 20150220
  Transmission Date: 20150721
  Serious: Yes (Other)
  Sender: FDA-Public Use
  Company Number: DE-CIPLA LTD.-2015DE01235

PATIENT

DRUGS (5)
  1. IRINOTECAN [Suspect]
     Active Substance: IRINOTECAN
     Indication: RECTAL CANCER
     Dosage: 40 MG/ M2 DAYS 1, 8, 15, 22, AND 29
  2. CAPECITABINE. [Suspect]
     Active Substance: CAPECITABINE
     Indication: RECTAL CANCER
     Dosage: 500 MG/ M2 TWICE DAILY ON DAYS 1-38
     Route: 048
  3. CETUXIMAB [Suspect]
     Active Substance: CETUXIMAB
     Dosage: 250 MG/M2 DAYS 8, 15, 22, AND 29
  4. RADIOTHERAPY [Suspect]
     Active Substance: RADIATION THERAPY
     Indication: RECTAL CANCER
     Dosage: 34.20 GY
  5. CETUXIMAB [Suspect]
     Active Substance: CETUXIMAB
     Indication: RECTAL CANCER
     Dosage: 400 MG/M2 DAY 1

REACTIONS (1)
  - Cholangitis [Unknown]
